FAERS Safety Report 4613634-6 (Version None)
Quarter: 2005Q1

REPORT INFORMATION
  Report Type: 
  Country: None (occurrence: None)
  Receive Date: 20050318
  Receipt Date: 20050318
  Transmission Date: 20050727
  Serious: Yes (Hospitalization)
  Sender: FDA-Public Use
  Company Number: None

PATIENT
  Sex: Male
  Weight: 127.0072 kg

DRUGS (12)
  1. ATENOLOL [Suspect]
     Indication: HYPERTENSION
     Dosage: 12.5 MG PO QD    PRIOR TO ADMISSION
     Route: 048
  2. CELEBREX [Concomitant]
  3. GLUCOTROL [Concomitant]
  4. FOLIC ACID [Concomitant]
  5. GLUCOPHAGE [Concomitant]
  6. DIOVAN [Concomitant]
  7. AVANDIA [Concomitant]
  8. ASPIRIN [Concomitant]
  9. NEXIUM [Concomitant]
  10. NIASPAN [Concomitant]
  11. LIPITOR [Concomitant]
  12. ATIVAN [Concomitant]

REACTIONS (4)
  - BRADYCARDIA [None]
  - DIZZINESS [None]
  - HYPERHIDROSIS [None]
  - IMPAIRED DRIVING ABILITY [None]
